FAERS Safety Report 8345786-9 (Version None)
Quarter: 2012Q2

REPORT INFORMATION
  Report Type: 
  Country: None (occurrence: None)
  Receive Date: 20120508
  Receipt Date: 20120426
  Transmission Date: 20120825
  Serious: Yes (Hospitalization, Other)
  Sender: FDA-Public Use
  Company Number: US-MYLANLABS-2008AL006585

PATIENT
  Sex: Male
  Weight: 93.44 kg

DRUGS (22)
  1. ASPIRIN [Concomitant]
  2. PROSCAR [Concomitant]
  3. PROVENTIL [Concomitant]
  4. VICODIN [Concomitant]
  5. FLOMAX [Concomitant]
  6. TAMBOCOR [Concomitant]
  7. WARFARIN SODIUM [Concomitant]
  8. COUMADIN [Concomitant]
  9. LAMICTAL [Concomitant]
  10. NARDIL [Concomitant]
  11. VYTORIN [Concomitant]
  12. TOPROL-XL [Concomitant]
  13. LOVASTATIN [Concomitant]
  14. MULTI-VITAMINS [Concomitant]
  15. CARDIZEM [Concomitant]
  16. PRAVACHOL [Concomitant]
  17. SIMVASTATIN [Concomitant]
  18. AMIODARONE HCL [Concomitant]
  19. DIGOXIN [Suspect]
     Route: 048
     Dates: start: 20060920, end: 20080501
  20. ZITHROMAX [Concomitant]
  21. TENORMIN [Concomitant]
  22. PEPCID [Concomitant]

REACTIONS (43)
  - HEART RATE INCREASED [None]
  - ECHOCARDIOGRAM ABNORMAL [None]
  - OSTEOARTHRITIS [None]
  - BLOOD CHOLESTEROL INCREASED [None]
  - CHEST PAIN [None]
  - PAIN IN EXTREMITY [None]
  - MALAISE [None]
  - RECTAL HAEMORRHAGE [None]
  - ATAXIA [None]
  - DYSPNOEA [None]
  - DIARRHOEA [None]
  - MUSCLE SPASMS [None]
  - LOSS OF CONSCIOUSNESS [None]
  - BRADYCARDIA [None]
  - SYNCOPE [None]
  - ABDOMINAL PAIN UPPER [None]
  - TREMOR [None]
  - BALANCE DISORDER [None]
  - COORDINATION ABNORMAL [None]
  - DIVERTICULUM [None]
  - DIZZINESS [None]
  - INSOMNIA [None]
  - OBESITY [None]
  - ATRIAL FIBRILLATION [None]
  - INTERNATIONAL NORMALISED RATIO INCREASED [None]
  - ELECTROCARDIOGRAM ABNORMAL [None]
  - STRESS [None]
  - PROTHROMBIN LEVEL INCREASED [None]
  - HYPOTENSION [None]
  - DYSPNOEA EXERTIONAL [None]
  - INJURY [None]
  - PALPITATIONS [None]
  - ATRIAL FLUTTER [None]
  - CARDIOVERSION [None]
  - MUSCULOSKELETAL CHEST PAIN [None]
  - PAIN [None]
  - CARDIAC VALVE DISEASE [None]
  - MITRAL VALVE INCOMPETENCE [None]
  - LEFT VENTRICULAR HYPERTROPHY [None]
  - BRONCHITIS [None]
  - DECREASED ACTIVITY [None]
  - LABORATORY TEST ABNORMAL [None]
  - POLYP [None]
